FAERS Safety Report 21446153 (Version 5)
Quarter: 2023Q2

REPORT INFORMATION
  Report Type: Report from Study
  Country: US (occurrence: US)
  Receive Date: 20221012
  Receipt Date: 20230510
  Transmission Date: 20230721
  Serious: Yes (Hospitalization)
  Sender: FDA-Public Use
  Company Number: US-ABBVIE-4137016

PATIENT
  Age: 53 Year
  Sex: Female

DRUGS (2)
  1. IMBRUVICA [Suspect]
     Active Substance: IBRUTINIB
     Indication: Chronic lymphocytic leukaemia
     Route: 048
     Dates: start: 20210722
  2. IMBRUVICA [Suspect]
     Active Substance: IBRUTINIB
     Indication: Chronic lymphocytic leukaemia
     Route: 048

REACTIONS (24)
  - Haemoglobin [Unknown]
  - Pain [Unknown]
  - Fear of disease [Unknown]
  - COVID-19 [Unknown]
  - Central venous catheterisation [Unknown]
  - Nausea [Unknown]
  - Loss of personal independence in daily activities [Unknown]
  - Muscle spasms [Unknown]
  - Muscle tightness [Unknown]
  - Clostridium difficile infection [Unknown]
  - Arthralgia [Unknown]
  - Contusion [Unknown]
  - Joint swelling [Unknown]
  - Gout [Unknown]
  - Immunoglobulins decreased [Unknown]
  - Dysstasia [Unknown]
  - Emotional disorder [Unknown]
  - Depression [Unknown]
  - Pneumonia [Unknown]
  - Peripheral swelling [Unknown]
  - Pharyngitis streptococcal [Unknown]
  - Pain [Unknown]
  - Bone pain [Unknown]
  - Pleurisy [Unknown]

NARRATIVE: CASE EVENT DATE: 20220201
